FAERS Safety Report 10530988 (Version 2)
Quarter: 2015Q1

REPORT INFORMATION
  Report Type: Report from Study
  Country: GB (occurrence: GB)
  Receive Date: 20141021
  Receipt Date: 20150119
  Transmission Date: 20150720
  Serious: Yes (Hospitalization)
  Sender: FDA-Public Use
  Company Number: GB-MUNDIPHARMA DS AND PHARMACOVIGILANCE-DEU-2014-0015531

PATIENT
  Age: 72 Year
  Sex: Male

DRUGS (6)
  1. CARBOCISTEINE [Concomitant]
     Active Substance: CARBOCYSTEINE
     Indication: PRODUCT USED FOR UNKNOWN INDICATION
     Dosage: 375 MG, TID
     Route: 048
  2. CALCEOS [Concomitant]
     Active Substance: CALCIUM CARBONATE\CHOLECALCIFEROL
     Indication: PRODUCT USED FOR UNKNOWN INDICATION
     Dosage: UNK, BID
     Route: 048
  3. ALENDRONIC ACID [Concomitant]
     Active Substance: ALENDRONIC ACID
     Dosage: 70 MG, WEEKLY
     Route: 048
  4. PLACEBO [Suspect]
     Active Substance: UNSPECIFIED INGREDIENT
     Indication: CHRONIC OBSTRUCTIVE PULMONARY DISEASE
     Dosage: 200 MG, DAILY
     Route: 048
     Dates: start: 20140913
  5. BLINDED THEOPHYLLINE CR TABLET 200 MG [Suspect]
     Active Substance: THEOPHYLLINE ANHYDROUS
     Indication: CHRONIC OBSTRUCTIVE PULMONARY DISEASE
     Dosage: 200 MG, DAILY
     Route: 048
     Dates: start: 20140913
  6. LORAZEPAM. [Concomitant]
     Active Substance: LORAZEPAM
     Indication: PRODUCT USED FOR UNKNOWN INDICATION
     Dosage: 0.5 MG, PRN
     Route: 048

REACTIONS (1)
  - Bursitis [Recovering/Resolving]

NARRATIVE: CASE EVENT DATE: 20140930
